FAERS Safety Report 7436761-7 (Version None)
Quarter: 2011Q2

REPORT INFORMATION
  Report Type: 
  Country: None (occurrence: None)
  Receive Date: 20110426
  Receipt Date: 20110415
  Transmission Date: 20111010
  Serious: Yes (Life-Threatening, Other)
  Sender: FDA-Public Use
  Company Number: US-CELGENEUS-163-21880-11032428

PATIENT
  Sex: Male

DRUGS (9)
  1. REVLIMID [Suspect]
     Indication: MULTIPLE MYELOMA
     Dosage: 25 MILLIGRAM
     Route: 048
     Dates: start: 20080101
  2. REVLIMID [Suspect]
     Dosage: 15-25MG
     Route: 048
     Dates: start: 20080401
  3. DEXAMETHASONE [Concomitant]
     Dosage: 40 MILLIGRAM
     Route: 065
     Dates: start: 20081229, end: 20090224
  4. VELCADE [Concomitant]
     Route: 065
     Dates: start: 20110101, end: 20110201
  5. PROCRIT [Concomitant]
     Route: 065
     Dates: start: 20110216, end: 20110316
  6. REVLIMID [Suspect]
     Dosage: 15 MILLIGRAM
     Route: 048
     Dates: start: 20110126, end: 20110223
  7. NEUPOGEN [Concomitant]
     Dates: start: 20110223, end: 20110318
  8. DEXAMETHASONE [Concomitant]
     Indication: MULTIPLE MYELOMA
     Dosage: 40 MILLIGRAM
     Route: 065
     Dates: start: 20080101, end: 20080401
  9. VELCADE [Concomitant]
     Indication: MULTIPLE MYELOMA
     Dosage: 1.5 MILLIGRAM
     Route: 065
     Dates: start: 20081229, end: 20090224

REACTIONS (3)
  - PANCYTOPENIA [None]
  - MULTIPLE MYELOMA [None]
  - RENAL FAILURE ACUTE [None]
